FAERS Safety Report 6644522-1 (Version None)
Quarter: 2010Q1

REPORT INFORMATION
  Report Type: 
  Country: None (occurrence: None)
  Receive Date: 20100319
  Receipt Date: 20100319
  Transmission Date: 20100710
  Serious: Yes (Other)
  Sender: FDA-Public Use
  Company Number: None

PATIENT
  Age: 4 Year
  Sex: Female
  Weight: 24.2 kg

DRUGS (1)
  1. LAMICTAL ODT [Suspect]
     Indication: CONVULSION

REACTIONS (1)
  - PRODUCT SUBSTITUTION ISSUE [None]
